FAERS Safety Report 8539014-9 (Version None)
Quarter: 2012Q3

REPORT INFORMATION
  Report Type: 
  Country: None (occurrence: None)
  Receive Date: 20120726
  Receipt Date: 20120723
  Transmission Date: 20120928
  Serious: Yes (Other)
  Sender: FDA-Public Use
  Company Number: PHHY2012BR055258

PATIENT
  Sex: Female

DRUGS (7)
  1. CEWIN [Concomitant]
     Indication: INFLUENZA
     Dosage: 500 MG, DAILY
     Route: 048
  2. LASIX [Concomitant]
     Indication: SWELLING
     Dosage: 1 DF, DAILY
  3. AMLODOPINE BESYLATE AND VALSARTAN [Suspect]
     Dosage: 320 MG, UNK
  4. PRADAXA [Concomitant]
     Dosage: 2 DF, DAILY
     Route: 048
  5. VALSARTAN/HYDROCHLOORTHIAZIDE [Concomitant]
     Dosage: 1 DF (80MG VALS/ 12.5MG HCT), DAILY
     Route: 048
  6. LASIX [Concomitant]
     Dosage: UNK
     Dates: start: 20120601
  7. PANTOPRAZOLE SODIUM [Concomitant]
     Dosage: 2 DF, DAILY
     Route: 048

REACTIONS (3)
  - CEREBROVASCULAR ACCIDENT [None]
  - MEMORY IMPAIRMENT [None]
  - CARDIAC DISORDER [None]
